FAERS Safety Report 12784153 (Version 6)
Quarter: 2017Q1

REPORT INFORMATION
  Report Type: Report from Study
  Country: US (occurrence: US)
  Receive Date: 20160927
  Receipt Date: 20170313
  Transmission Date: 20170428
  Serious: Yes (Hospitalization, Other)
  Sender: FDA-Public Use
  Company Number: US-BAYER-2016-060447

PATIENT
  Age: 75 Year
  Sex: Female
  Weight: 86.17 kg

DRUGS (12)
  1. ADEMPAS [Suspect]
     Active Substance: RIOCIGUAT
     Indication: PULMONARY ARTERIAL HYPERTENSION
     Dosage: 2 MG, TID
     Route: 048
  2. ADEMPAS [Suspect]
     Active Substance: RIOCIGUAT
     Indication: PULMONARY ARTERIAL HYPERTENSION
     Dosage: 2.5 MG, TID
     Route: 048
  3. DILTIAZEM. [Concomitant]
     Active Substance: DILTIAZEM
     Dosage: UNK
  4. ADEMPAS [Suspect]
     Active Substance: RIOCIGUAT
     Indication: PULMONARY ARTERIAL HYPERTENSION
     Dosage: 2.5 MG, TID
     Route: 048
  5. ADEMPAS [Suspect]
     Active Substance: RIOCIGUAT
     Indication: PULMONARY ARTERIAL HYPERTENSION
     Dosage: 2.5 MG, TID
     Route: 048
  6. WARFARIN [Concomitant]
     Active Substance: WARFARIN
     Dosage: UNK
  7. COUMADIN [Concomitant]
     Active Substance: WARFARIN SODIUM
     Dosage: UNK
  8. ADEMPAS [Suspect]
     Active Substance: RIOCIGUAT
     Indication: PULMONARY ARTERIAL HYPERTENSION
     Dosage: UNK
     Dates: start: 20151123
  9. REVATIO [Concomitant]
     Active Substance: SILDENAFIL CITRATE
     Dosage: UNK
  10. ADEMPAS [Suspect]
     Active Substance: RIOCIGUAT
     Indication: PULMONARY ARTERIAL HYPERTENSION
     Dosage: 2.5 MG, TID
     Route: 048
  11. LETAIRIS [Concomitant]
     Active Substance: AMBRISENTAN
     Dosage: UNK
  12. XARELTO [Concomitant]
     Active Substance: RIVAROXABAN

REACTIONS (24)
  - Central venous catheterisation [None]
  - Dyspnoea [None]
  - Peripheral swelling [Not Recovered/Not Resolved]
  - Drug ineffective [Unknown]
  - Peripheral swelling [None]
  - Endotracheal intubation [None]
  - Catheter site swelling [Not Recovered/Not Resolved]
  - Chronic obstructive pulmonary disease [None]
  - Fluid retention [None]
  - Somnolence [None]
  - Peripheral swelling [None]
  - Dyspnoea [Unknown]
  - Dyspnoea [Recovered/Resolved]
  - Epistaxis [Unknown]
  - Fall [Recovering/Resolving]
  - Limb injury [Unknown]
  - Ligament sprain [Recovering/Resolving]
  - Dyspnoea [Recovered/Resolved]
  - Cardiac procedure complication [Unknown]
  - Oedema peripheral [Not Recovered/Not Resolved]
  - Vessel puncture site pain [None]
  - Hypotension [Unknown]
  - Neck pain [Unknown]
  - Joint swelling [Unknown]

NARRATIVE: CASE EVENT DATE: 20160401
